FAERS Safety Report 10069119 (Version 3)
Quarter: 2014Q3

REPORT INFORMATION
  Report Type: Report from Study
  Country: US (occurrence: US)
  Receive Date: 20140409
  Receipt Date: 20140729
  Transmission Date: 20150326
  Serious: Yes (Other)
  Sender: FDA-Public Use
  Company Number: PHEH2014US006973

PATIENT
  Sex: Female

DRUGS (2)
  1. DIOVAN [Suspect]
     Active Substance: VALSARTAN
     Dosage: 160 MG, UNK
     Route: 048
  2. DIOVAN [Suspect]
     Active Substance: VALSARTAN
     Dosage: 80 MG, UNK
     Route: 048

REACTIONS (7)
  - Neoplasm malignant [Unknown]
  - Insomnia [Unknown]
  - Balance disorder [Unknown]
  - Back pain [Unknown]
  - Malaise [Unknown]
  - Tinnitus [Unknown]
  - Cerebrovascular accident [Unknown]
